FAERS Safety Report 6644586-5 (Version None)
Quarter: 2010Q1

REPORT INFORMATION
  Report Type: 
  Country: None (occurrence: None)
  Receive Date: 20100318
  Receipt Date: 20100318
  Transmission Date: 20100710
  Serious: Yes (Hospitalization)
  Sender: FDA-Public Use
  Company Number: None

PATIENT
  Sex: Male
  Weight: 25 kg

DRUGS (4)
  1. VINCRISTINE [Suspect]
     Dosage: 3.6 MG
  2. DEXAMETHASONE [Suspect]
     Dosage: 55 MG
  3. MERCAPTOPURINE [Suspect]
     Dosage: 3600 MG
  4. METHOTREXATE [Suspect]
     Dosage: 172 MG

REACTIONS (4)
  - CHILLS [None]
  - HYPOTENSION [None]
  - PYREXIA [None]
  - SEPSIS [None]
